FAERS Safety Report 18489672 (Version 2)
Quarter: 2020Q4

REPORT INFORMATION
  Report Type: Spontaneous
  Country: SI (occurrence: SI)
  Receive Date: 20201111
  Receipt Date: 20201119
  Transmission Date: 20210114
  Serious: Yes (Other)
  Sender: FDA-Public Use
  Company Number: SI-NOVOPROD-754948

PATIENT
  Age: 74 Year
  Sex: Male
  Weight: 92 kg

DRUGS (9)
  1. ISOPHANE INSULIN [Suspect]
     Active Substance: INSULIN NOS
     Dosage: BEFORE BED
     Route: 065
     Dates: start: 199702, end: 199706
  2. ISOPHANE INSULIN [Suspect]
     Active Substance: INSULIN NOS
     Dosage: BEFORE BED
     Route: 065
     Dates: start: 199708, end: 200004
  3. ISOPHANE INSULIN [Suspect]
     Active Substance: INSULIN NOS
     Dosage: UNK
     Route: 065
     Dates: start: 200004, end: 200301
  4. LERCANIDIPINE [Concomitant]
     Active Substance: LERCANIDIPINE
     Indication: HYPERTENSION
     Dosage: 20 MG
     Route: 065
  5. ISOPHANE INSULIN [Suspect]
     Active Substance: INSULIN NOS
     Indication: TYPE 2 DIABETES MELLITUS
     Dosage: BEFORE BED
     Route: 065
     Dates: start: 199511, end: 199601
  6. ENALAPRIL [Concomitant]
     Active Substance: ENALAPRIL
     Indication: HYPERTENSION
     Dosage: 10 MG
     Route: 065
  7. CARVEDIOL [Concomitant]
     Active Substance: CARVEDILOL
     Indication: HYPERTENSION
  8. NOVOMIX 30 [Suspect]
     Active Substance: INSULIN ASPART
     Indication: TYPE 2 DIABETES MELLITUS
     Dosage: UNK
     Route: 065
     Dates: start: 200109, end: 200301
  9. ISOPHANE INSULIN [Suspect]
     Active Substance: INSULIN NOS
     Dosage: MORNING AND BEFORE BED
     Route: 065
     Dates: start: 199601, end: 199702

REACTIONS (1)
  - Myocardial ischaemia [Not Recovered/Not Resolved]

NARRATIVE: CASE EVENT DATE: 2001
